FAERS Safety Report 14040779 (Version 1)
Quarter: 2017Q4

REPORT INFORMATION
  Report Type: Spontaneous
  Country: US (occurrence: US)
  Receive Date: 20171004
  Receipt Date: 20171004
  Transmission Date: 20180321
  Serious: No
  Sender: FDA-Public Use
  Company Number: US-AMGEN-USASP2017092409

PATIENT
  Age: 66 Year
  Sex: Female

DRUGS (1)
  1. PROLIA [Suspect]
     Active Substance: DENOSUMAB
     Indication: OSTEOPOROSIS POSTMENOPAUSAL
     Dosage: UNK, UNK
     Route: 065
     Dates: start: 20170503

REACTIONS (5)
  - Skin exfoliation [Unknown]
  - Erythema [Unknown]
  - Pruritus [Recovering/Resolving]
  - Skin burning sensation [Recovering/Resolving]
  - Rash [Unknown]

NARRATIVE: CASE EVENT DATE: 201705
